FAERS Safety Report 5659648-9 (Version None)
Quarter: 2008Q1

REPORT INFORMATION
  Report Type: 
  Country: None (occurrence: None)
  Receive Date: 20080310
  Receipt Date: 20080310
  Transmission Date: 20080703
  Serious: No
  Sender: FDA-Public Use
  Company Number: None

PATIENT
  Sex: Female
  Weight: 135.1719 kg

DRUGS (1)
  1. BUPROPION SR [Suspect]
     Dosage: 150MG BID PO
     Route: 048

REACTIONS (1)
  - URTICARIA [None]
